FAERS Safety Report 5282297-1 (Version None)
Quarter: 2007Q1

REPORT INFORMATION
  Report Type: 
  Country: None (occurrence: None)
  Receive Date: 20070331
  Receipt Date: 20070320
  Transmission Date: 20070707
  Serious: Yes (Other)
  Sender: FDA-Public Use
  Company Number: US-PFIZER INC-2007023637

PATIENT
  Sex: Female

DRUGS (8)
  1. LYRICA [Suspect]
     Indication: NERVE COMPRESSION
  2. LYRICA [Suspect]
     Indication: RADICULOPATHY
  3. VICODIN [Concomitant]
  4. OXYCONTIN [Concomitant]
  5. PROVIGIL [Concomitant]
  6. GLUCOPHAGE [Concomitant]
  7. AVANDIA [Concomitant]
  8. ALL OTHER THERAPEUTIC PRODUCTS [Concomitant]

REACTIONS (6)
  - ADDISON'S DISEASE [None]
  - DIABETES MELLITUS [None]
  - OEDEMA PERIPHERAL [None]
  - SKIN LESION [None]
  - SLEEP APNOEA SYNDROME [None]
  - WEIGHT INCREASED [None]
